FAERS Safety Report 9004515 (Version 1)
Quarter: 2013Q1

REPORT INFORMATION
  Report Type: Spontaneous
  Country: US (occurrence: None)
  Receive Date: 20130103
  Receipt Date: 20130103
  Transmission Date: 20140127
  Serious: Yes (Other)
  Sender: FDA-Public Use
  Company Number: None

PATIENT
  Age: 38 Year
  Sex: Female
  Weight: 47.63 kg

DRUGS (1)
  1. ULTRAM [Suspect]
     Indication: ARTHRALGIA
     Dosage: 1 PILL 4-6 HOURS PO
     Route: 048
     Dates: start: 20121228, end: 20121228

REACTIONS (9)
  - Dizziness [None]
  - Fatigue [None]
  - Restlessness [None]
  - Pruritus [None]
  - Hypopnoea [None]
  - Nausea [None]
  - Paraesthesia [None]
  - Rash [None]
  - Pain [None]
